FAERS Safety Report 8604919-7 (Version None)
Quarter: 2012Q3

REPORT INFORMATION
  Report Type: 
  Country: None (occurrence: None)
  Receive Date: 20120808
  Receipt Date: 20120808
  Transmission Date: 20120928
  Serious: Yes (Death)
  Sender: FDA-Public Use
  Company Number: None

PATIENT
  Age: 16 Year
  Sex: Male
  Weight: 55 kg

DRUGS (15)
  1. CAPHOSOL/PLACEBO STUDY DRUG (ACCL1031) [Concomitant]
  2. ACETAMINOPHEN [Concomitant]
  3. KEPPRA [Concomitant]
  4. METHYLPREDNISOLONE (SOLUMEDROL) [Concomitant]
  5. CHLORHEXIDIINE GLUC [Concomitant]
  6. HYDROCORTISONE SOD SUCCINATE [Concomitant]
  7. DEXAMETHASONE [Concomitant]
  8. DIPHENHYDRAMINE (BENADRYL) [Concomitant]
  9. HYDROZYZINE (ATARAX) [Concomitant]
  10. ZOFRAN [Concomitant]
  11. GANCICLOVIR [Concomitant]
  12. DIFLUCAN [Concomitant]
  13. CYTARABINE [Concomitant]
  14. CLOFARABINE [Suspect]
     Indication: ACUTE PROMYELOCYTIC LEUKAEMIA
     Dosage: 52MG/M^2 QD IV
     Route: 042
     Dates: start: 20120725, end: 20120729
  15. MICONAZOLE 2% POWDER MICRO-GUARD [Concomitant]

REACTIONS (11)
  - TACHYCARDIA [None]
  - HYPOPERFUSION [None]
  - NEUTROPENIA [None]
  - ACIDOSIS [None]
  - ABDOMINAL PAIN [None]
  - BLOOD PRESSURE DECREASED [None]
  - CARDIAC ARREST [None]
  - DIARRHOEA [None]
  - STREPTOCOCCAL SEPSIS [None]
  - CONVULSION [None]
  - CLOSTRIDIUM TEST POSITIVE [None]
